FAERS Safety Report 9305374 (Version 1)
Quarter: 2013Q2

REPORT INFORMATION
  Report Type: Spontaneous
  Country: US (occurrence: None)
  Receive Date: 20130522
  Receipt Date: 20130522
  Transmission Date: 20140414
  Serious: Yes (Hospitalization)
  Sender: FDA-Public Use
  Company Number: None

PATIENT
  Age: 5 Year
  Sex: Male
  Weight: 21.7 kg

DRUGS (3)
  1. DACTINOMYCIN [Suspect]
  2. DOXORUBICIN HYDROCHLORIDE [Suspect]
  3. VINCRISTINE SULFATE [Suspect]

REACTIONS (10)
  - Vomiting [None]
  - Abdominal distension [None]
  - Diarrhoea [None]
  - Ascites [None]
  - Ileus [None]
  - Weight increased [None]
  - Abdominal pain upper [None]
  - Venoocclusive liver disease [None]
  - Blood bilirubin increased [None]
  - Thrombocytopenia [None]
